FAERS Safety Report 8854575 (Version 1)
Quarter: 2012Q4

REPORT INFORMATION
  Report Type: Report from Study
  Country: CA (occurrence: CA)
  Receive Date: 20121023
  Receipt Date: 20121023
  Transmission Date: 20130627
  Serious: Yes (Disabling)
  Sender: FDA-Public Use
  Company Number: CA-PFIZER INC-2012260388

PATIENT
  Age: 35 Year
  Sex: Female

DRUGS (23)
  1. DOXORUBICIN HCL [Suspect]
     Indication: DIFFUSE LARGE B-CELL LYMPHOMA
     Dosage: UNK
     Route: 042
     Dates: start: 20120410
  2. VINCRISTINE SULFATE [Suspect]
     Indication: DIFFUSE LARGE B-CELL LYMPHOMA
     Dosage: UNK
     Route: 042
     Dates: start: 20120410
  3. RITUXIMAB [Suspect]
     Indication: DIFFUSE LARGE B-CELL LYMPHOMA
     Dosage: UNK
     Route: 042
     Dates: start: 20120410
  4. CYCLOPHOSPHAMIDE [Suspect]
     Indication: DIFFUSE LARGE B-CELL LYMPHOMA
     Dosage: UNK
     Dates: start: 20120410
  5. PREDNISOLONE [Suspect]
     Indication: DIFFUSE LARGE B-CELL LYMPHOMA
     Dosage: UNK
     Route: 048
  6. PANTOPRAZOLE [Concomitant]
     Indication: DYSPEPSIA
  7. YAZ [Concomitant]
     Indication: CONTRACEPTION
  8. NAPROXEN [Concomitant]
     Indication: BACK PAIN
  9. MORPHINE [Concomitant]
     Indication: ABDOMINAL DISCOMFORT
     Dosage: UNK
     Dates: start: 20120320
  10. MORPHINE [Concomitant]
     Dosage: UNK
     Dates: start: 20120601
  11. ACETAMINOPHEN/TRAMADOL HYDROCHLORIDE [Concomitant]
     Indication: ABDOMINAL PAIN
  12. COLACE [Concomitant]
     Indication: CONSTIPATION
  13. SENOKOT [Concomitant]
     Indication: CONSTIPATION
  14. VALACICLOVIR [Concomitant]
     Indication: PROPHYLAXIS
     Dosage: UNK
     Dates: start: 20120307
  15. VALACICLOVIR [Concomitant]
     Dosage: UNK
     Dates: start: 20120604
  16. CODEINE [Concomitant]
     Indication: ORAL PAIN
     Dosage: UNK
     Dates: start: 20120407
  17. BENZYDAMINE [Concomitant]
     Indication: MUCOSAL INFLAMMATION
     Dosage: UNK
     Dates: start: 20120427
  18. ACETAMINOPHEN [Concomitant]
     Indication: PREMEDICATION
     Dosage: UNK
     Dates: start: 20120410
  19. RANITIDINE [Concomitant]
     Indication: PREMEDICATION
     Dosage: UNK
     Dates: start: 20120410
  20. PREPARATION H /CAN/ [Concomitant]
     Indication: HAEMORRHOIDS
     Dosage: UNK
     Dates: start: 20120517
  21. LIDOCAINE [Concomitant]
     Dosage: UNK
     Dates: start: 20120608
  22. SHARK-LIVER OIL [Concomitant]
  23. RESTORALAX [Concomitant]
     Indication: CONSTIPATION
     Dosage: UNK
     Dates: start: 20120608

REACTIONS (1)
  - Oral herpes [Recovering/Resolving]
